FAERS Safety Report 4412124-3 (Version None)
Quarter: 2004Q3

REPORT INFORMATION
  Report Type: 
  Country: None (occurrence: None)
  Receive Date: 20040730
  Receipt Date: 20040722
  Transmission Date: 20050211
  Serious: Yes (Hospitalization)
  Sender: FDA-Public Use
  Company Number: SE-GLAXOSMITHKLINE-B0340679A

PATIENT
  Sex: Male

DRUGS (5)
  1. VENTOLIN [Suspect]
     Indication: DRUG USE FOR UNKNOWN INDICATION
     Route: 055
  2. APROVEL [Concomitant]
  3. TROMBYL [Concomitant]
  4. LIPITOR [Concomitant]
  5. PULMICORT [Concomitant]

REACTIONS (7)
  - DYSPHAGIA [None]
  - EAR PAIN [None]
  - PAIN IN JAW [None]
  - PHARYNGOLARYNGEAL PAIN [None]
  - SPEECH DISORDER [None]
  - TONGUE PARALYSIS [None]
  - TREMOR [None]
